FAERS Safety Report 9768994 (Version 1)
Quarter: 2013Q4

REPORT INFORMATION
  Report Type: Report from Study
  Country: US (occurrence: US)
  Receive Date: 20131218
  Receipt Date: 20131218
  Transmission Date: 20140711
  Serious: Yes (Other)
  Sender: FDA-Public Use
  Company Number: US-ROCHE-1320429

PATIENT
  Age: 71 Year
  Sex: Male

DRUGS (6)
  1. LUCENTIS [Suspect]
     Indication: AGE-RELATED MACULAR DEGENERATION
     Dosage: RIGHT EYE
     Route: 050
     Dates: start: 20130311
  2. LUCENTIS [Suspect]
     Indication: MACULAR OEDEMA
     Dosage: RIGHT EYE
     Route: 050
     Dates: start: 20130614
  3. LUCENTIS [Suspect]
     Indication: CYSTOID MACULAR OEDEMA
  4. LUCENTIS [Suspect]
     Indication: VITREOUS DETACHMENT
  5. TIMOLOL [Concomitant]
     Dosage: TWICE A DAY IN BOTH EYE
     Route: 065
  6. DORZOLAMIDE [Concomitant]
     Dosage: TWICE A DAY IN BOTH EYE
     Route: 065

REACTIONS (3)
  - Blindness [Unknown]
  - Vision blurred [Unknown]
  - Retinal cyst [Unknown]
